FAERS Safety Report 15058176 (Version 1)
Quarter: 2018Q2

REPORT INFORMATION
  Report Type: Spontaneous
  Country: GB (occurrence: GB)
  Receive Date: 20180625
  Receipt Date: 20180625
  Transmission Date: 20180711
  Serious: Yes (Death, Hospitalization)
  Sender: FDA-Public Use
  Company Number: GB-TEVA-2018-GB-912413

PATIENT
  Age: 76 Year
  Sex: Female
  Weight: 70 kg

DRUGS (2)
  1. VERAPAMIL [Interacting]
     Active Substance: VERAPAMIL HYDROCHLORIDE
     Indication: ATRIAL FIBRILLATION
     Route: 048
     Dates: start: 20160701, end: 20180415
  2. CLARITHROMYCIN. [Suspect]
     Active Substance: CLARITHROMYCIN
     Indication: ASTHMA
     Route: 048
     Dates: start: 20180407, end: 20180417

REACTIONS (10)
  - Atrioventricular block complete [Fatal]
  - Circulatory collapse [Fatal]
  - Asthenia [Fatal]
  - Pancreatitis [Fatal]
  - Constipation [Fatal]
  - Acute kidney injury [Fatal]
  - Hypotension [Fatal]
  - Toxicity to various agents [Fatal]
  - Vomiting [Fatal]
  - Labelled drug-drug interaction medication error [Fatal]

NARRATIVE: CASE EVENT DATE: 20180415
